FAERS Safety Report 9197294 (Version 1)
Quarter: 2013Q1

REPORT INFORMATION
  Report Type: Spontaneous
  Country: US (occurrence: None)
  Receive Date: 20120709
  Receipt Date: 20120709
  Transmission Date: 20140127
  Serious: No
  Sender: FDA-Public Use
  Company Number: 2012HGS-003597

PATIENT
  Age: 26 Year
  Sex: Female
  Weight: 48.08 kg

DRUGS (9)
  1. BENLYSTA [Suspect]
     Dates: start: 20120430
  2. PREDNISONE (PREDNISONE) (PREDNISONE) [Concomitant]
     Dosage: 1 IN 2 D
  3. PLAUUENIL  (HYDROXYCHLOROQUINE PHOSPHATE) (HYDROXYCHLOROQUINE PHOSPATE) [Concomitant]
     Dosage: 2 IN 1 D
  4. CLONIDINE (CLONIDINE) (CLONIDINE) [Concomitant]
  5. CLONIDINE (CLONIDINE) (CLONIDINE) [Concomitant]
  6. NEXIUM (ESOMEPRAZOLE MAGNESIUM) (ESOMEPRAZOLE MAGNESIUM) [Concomitant]
     Dosage: 1 IN 1 D
  7. XANAX (ALPRAZOLAM) (ALPRAZOLAM) [Concomitant]
     Dosage: 3 IN 1 D
  8. ZOLOFT (SERTRALINE HYDROCHLORIDE) (SERTRALINE HYDROCHLORIDE) [Concomitant]
     Dosage: 1 IN 1 D
  9. LORTAB (VICODIN) (PARACETAMOL, HYDROCODONE BITARTRATE) [Concomitant]
     Dosage: 3 IN 1 D

REACTIONS (4)
  - Productive cough [None]
  - Headache [None]
  - Diarrhoea [None]
  - Abdominal pain upper [None]
